FAERS Safety Report 5443933-X (Version None)
Quarter: 2007Q3

REPORT INFORMATION
  Report Type: 
  Country: None (occurrence: None)
  Receive Date: 20070905
  Receipt Date: 20070824
  Transmission Date: 20080115
  Serious: Yes (Other)
  Sender: FDA-Public Use
  Company Number: US-PFIZER INC-2007071583

PATIENT
  Sex: Male
  Weight: 81.2 kg

DRUGS (2)
  1. CHANTIX [Suspect]
     Indication: SMOKING CESSATION THERAPY
     Dates: start: 20070801, end: 20070809
  2. ZETIA [Concomitant]

REACTIONS (5)
  - DEAFNESS BILATERAL [None]
  - DIPLOPIA [None]
  - EYE LASER SURGERY [None]
  - LACRIMATION INCREASED [None]
  - VISION BLURRED [None]
